FAERS Safety Report 20384360 (Version 1)
Quarter: 2022Q1

REPORT INFORMATION
  Report Type: Spontaneous
  Country: US (occurrence: US)
  Receive Date: 20220127
  Receipt Date: 20220127
  Transmission Date: 20220424
  Serious: No
  Sender: FDA-Public Use
  Company Number: US-ALLERGAN-2114128US

PATIENT
  Sex: Female
  Weight: 91.61 kg

DRUGS (2)
  1. BOTOX [Suspect]
     Active Substance: ONABOTULINUMTOXINA
     Indication: Headache
     Dosage: 200 UNITS, SINGLE
     Dates: start: 20210325, end: 20210325
  2. BOTOX [Suspect]
     Active Substance: ONABOTULINUMTOXINA
     Indication: Neck pain

REACTIONS (8)
  - Dizziness [Unknown]
  - Skin haemorrhage [Unknown]
  - Loss of personal independence in daily activities [Unknown]
  - Off label use [Unknown]
  - Dysarthria [Unknown]
  - Vision blurred [Unknown]
  - Urticaria [Unknown]
  - Headache [Unknown]
